FAERS Safety Report 8102316-4 (Version None)
Quarter: 2012Q1

REPORT INFORMATION
  Report Type: 
  Country: None (occurrence: None)
  Receive Date: 20120201
  Receipt Date: 20120126
  Transmission Date: 20120608
  Serious: No
  Sender: FDA-Public Use
  Company Number: US-PFIZER INC-2012023405

PATIENT
  Sex: Female
  Weight: 81.633 kg

DRUGS (2)
  1. PENICILLIN [Suspect]
     Dosage: UNK
  2. CARVEDILOL [Concomitant]
     Indication: HYPERTENSION
     Dosage: 12.5 MG, 2X/DAY

REACTIONS (1)
  - HYPERSENSITIVITY [None]
